FAERS Safety Report 15455656 (Version 2)
Quarter: 2024Q2

REPORT INFORMATION
  Report Type: Spontaneous
  Country: DE (occurrence: DE)
  Receive Date: 20181002
  Receipt Date: 20240506
  Transmission Date: 20240716
  Serious: Yes (Other)
  Sender: FDA-Public Use
  Company Number: None

PATIENT

DRUGS (7)
  1. CLOPIDOGREL BISULFATE [Suspect]
     Active Substance: CLOPIDOGREL BISULFATE
     Indication: Antiplatelet therapy
     Dosage: 300 MG IF BODY MASS { 80 KG AND 450 MG IF BODY MASS } 80 KG
  2. CLOPIDOGREL BISULFATE [Suspect]
     Active Substance: CLOPIDOGREL BISULFATE
     Dosage: 75 MG
  3. ENOXAPARIN SODIUM [Suspect]
     Active Substance: ENOXAPARIN SODIUM
     Indication: Anticoagulant therapy
     Dosage: 30 MG
     Route: 042
  4. ENOXAPARIN SODIUM [Suspect]
     Active Substance: ENOXAPARIN SODIUM
     Dosage: 2 MG/KG BODY WEIGHT UNTIL A COMPLETED ANGIOGRAM OR PCI AND FOR AT LEAST 24 HOURS FOLLOWING THE PROCE
     Route: 058
  5. ASPIRIN [Suspect]
     Active Substance: ASPIRIN
     Indication: Antiplatelet therapy
     Dosage: UNK
  6. ASPIRIN [Suspect]
     Active Substance: ASPIRIN
     Dosage: 300 MG IF NO PRIOR ASPIRIN USE OR 100 MG IF PRIOR ASPIRIN USE ON A REGULAR BASIS
  7. ALTEPLASE [Suspect]
     Active Substance: ALTEPLASE
     Indication: Acute myocardial infarction
     Dosage: 100MG
     Route: 042

REACTIONS (3)
  - Reperfusion arrhythmia [Unknown]
  - Angina unstable [Unknown]
  - Gastrointestinal haemorrhage [Unknown]
